FAERS Safety Report 22389102 (Version 1)
Quarter: 2023Q2

REPORT INFORMATION
  Report Type: Spontaneous
  Country: FR (occurrence: FR)
  Receive Date: 20230531
  Receipt Date: 20230531
  Transmission Date: 20230722
  Serious: Yes (Hospitalization)
  Sender: FDA-Public Use
  Company Number: FR-CHEPLA-2023005894

PATIENT
  Age: 75 Year
  Sex: Male

DRUGS (3)
  1. ALDACTONE [Suspect]
     Active Substance: SPIRONOLACTONE
     Dosage: 0.5 DF, 1X/DAY
     Route: 048
     Dates: start: 20230516
  2. CANDESARTAN CILEXETIL [Suspect]
     Active Substance: CANDESARTAN CILEXETIL
     Indication: Hypertension
     Dosage: 16 MG, 2X/DAY, 16 MG1 TABLET IN THE MORNING AND IN THE EVENING
     Dates: start: 2023
  3. CANDESARTAN CILEXETIL [Suspect]
     Active Substance: CANDESARTAN CILEXETIL
     Dosage: 12 MG, DAILY, 12 MG IN 16MAY2023 EVENING
     Route: 048
     Dates: start: 20230516

REACTIONS (2)
  - Blood pressure abnormal [Recovered/Resolved]
  - Hypotension [Not Recovered/Not Resolved]

NARRATIVE: CASE EVENT DATE: 20230501
